FAERS Safety Report 7172679-5 (Version None)
Quarter: 2010Q4

REPORT INFORMATION
  Report Type: 
  Country: None (occurrence: None)
  Receive Date: 20101217
  Receipt Date: 20101210
  Transmission Date: 20110411
  Serious: Yes (Hospitalization, Other)
  Sender: FDA-Public Use
  Company Number: US-AMGEN-USASP2010008633

PATIENT

DRUGS (7)
  1. NPLATE [Suspect]
     Indication: IDIOPATHIC THROMBOCYTOPENIC PURPURA
     Dates: start: 20101018, end: 20101102
  2. HYDROCODONE BITARTRATE + IBUPROFEN [Concomitant]
     Route: 048
  3. MAGNESIUM CHLORIDE [Concomitant]
     Route: 048
  4. POTASSIUM [Concomitant]
     Route: 048
  5. DOCUSATE CALCIUM [Concomitant]
     Route: 048
  6. BACTRIM DS [Concomitant]
     Dosage: UNK UNK, BID
     Route: 048
  7. NADOLOL [Concomitant]
     Dosage: 80 MG, QD
     Route: 048

REACTIONS (7)
  - BLOOD CULTURE POSITIVE [None]
  - CARDIOMYOPATHY [None]
  - COMPLICATION OF DEVICE REMOVAL [None]
  - CONSTIPATION [None]
  - DEVICE RELATED INFECTION [None]
  - ENDOCARDITIS [None]
  - PYREXIA [None]
